FAERS Safety Report 8613215-3 (Version None)
Quarter: 2012Q3

REPORT INFORMATION
  Report Type: 
  Country: None (occurrence: None)
  Receive Date: 20120822
  Receipt Date: 20120813
  Transmission Date: 20120928
  Serious: Yes (Hospitalization, Other)
  Sender: FDA-Public Use
  Company Number: US-BAXTER-2009BH011711

PATIENT
  Sex: Female

DRUGS (5)
  1. DIANEAL [Suspect]
     Route: 033
     Dates: start: 20090719, end: 20090728
  2. HEPARIN [Suspect]
  3. DIANEAL [Suspect]
     Indication: PERITONEAL DIALYSIS
     Route: 033
  4. DIANEAL LOW CALCIUM W/ DEXTROSE 1.5% [Suspect]
     Indication: PERITONEAL DIALYSIS
     Route: 033
  5. VANCOMYCIN [Suspect]

REACTIONS (9)
  - CARDIAC ARREST [None]
  - ABDOMINAL DISTENSION [None]
  - WEIGHT INCREASED [None]
  - FEELING ABNORMAL [None]
  - PERITONEAL DIALYSIS COMPLICATION [None]
  - FLATULENCE [None]
  - UMBILICAL HERNIA [None]
  - DYSPNOEA [None]
  - BLOOD PRESSURE INCREASED [None]
